FAERS Safety Report 8585389-4 (Version None)
Quarter: 2012Q3

REPORT INFORMATION
  Report Type: 
  Country: None (occurrence: None)
  Receive Date: 20120810
  Receipt Date: 20120805
  Transmission Date: 20120928
  Serious: Yes (Hospitalization, Other)
  Sender: FDA-Public Use
  Company Number: US-AMGEN-USASP2012049291

PATIENT
  Age: 69 Year
  Sex: Male

DRUGS (1)
  1. ENBREL [Suspect]
     Indication: RHEUMATOID ARTHRITIS
     Dosage: 50 MG, QWK
     Dates: start: 20110902

REACTIONS (8)
  - POST PROCEDURAL HAEMATOMA [None]
  - DRY EYE [None]
  - ABDOMINAL DISTENSION [None]
  - SPINAL COLUMN STENOSIS [None]
  - MUSCULAR WEAKNESS [None]
  - CHRONIC OBSTRUCTIVE PULMONARY DISEASE [None]
  - VISUAL ACUITY REDUCED [None]
  - OROPHARYNGEAL PAIN [None]
